FAERS Safety Report 22303276 (Version 1)
Quarter: 2023Q2

REPORT INFORMATION
  Report Type: Spontaneous
  Country: US (occurrence: US)
  Receive Date: 20230510
  Receipt Date: 20230510
  Transmission Date: 20230721
  Serious: Yes (Hospitalization, Other)
  Sender: FDA-Public Use
  Company Number: US-TORRENT-00011828

PATIENT
  Age: 17 Year
  Sex: Male

DRUGS (2)
  1. OLANZAPINE [Suspect]
     Active Substance: OLANZAPINE
     Indication: Product used for unknown indication
     Dosage: 340 MG (68 TABLETS)
     Route: 048
  2. GUANFACINE [Suspect]
     Active Substance: GUANFACINE
     Indication: Product used for unknown indication
     Dosage: 189 MG (63 TABLETS)
     Route: 048

REACTIONS (5)
  - Presyncope [Recovered/Resolved]
  - Overdose [Unknown]
  - Sinus arrest [Recovered/Resolved]
  - Suicide attempt [Unknown]
  - Delirium [Recovering/Resolving]
